FAERS Safety Report 25151737 (Version 1)
Quarter: 2025Q2

REPORT INFORMATION
  Report Type: Spontaneous
  Country: HR (occurrence: HR)
  Receive Date: 20250402
  Receipt Date: 20250402
  Transmission Date: 20250716
  Serious: Yes (Hospitalization, Other)
  Sender: ASTELLAS
  Company Number: HR-ASTELLAS-2024-AER-012924

PATIENT
  Sex: Male

DRUGS (3)
  1. PADCEV [Suspect]
     Active Substance: ENFORTUMAB VEDOTIN-EJFV
     Indication: Product used for unknown indication
     Route: 065
     Dates: start: 2024
  2. PADCEV [Suspect]
     Active Substance: ENFORTUMAB VEDOTIN-EJFV
     Route: 065
     Dates: start: 2025
  3. PADCEV [Suspect]
     Active Substance: ENFORTUMAB VEDOTIN-EJFV
     Route: 065
     Dates: start: 2025

REACTIONS (10)
  - Jaundice cholestatic [Unknown]
  - Cholangitis [Unknown]
  - Cholangiocarcinoma [Unknown]
  - Acute kidney injury [Recovered/Resolved]
  - COVID-19 [Unknown]
  - Pain [Unknown]
  - Peripheral sensory neuropathy [Unknown]
  - Sinusitis [Unknown]
  - Acute sinusitis [Unknown]
  - Lumbar spinal stenosis [Unknown]

NARRATIVE: CASE EVENT DATE: 20240901
